FAERS Safety Report 5319451-6 (Version None)
Quarter: 2007Q2

REPORT INFORMATION
  Report Type: 
  Country: None (occurrence: None)
  Receive Date: 20070508
  Receipt Date: 20070425
  Transmission Date: 20071010
  Serious: Yes (Other)
  Sender: FDA-Public Use
  Company Number: US-ELI_LILLY_AND_COMPANY-US200704006311

PATIENT
  Age: 44 Year
  Sex: Female

DRUGS (5)
  1. FLOVENT [Concomitant]
  2. ADVAIR DISKUS 100/50 [Concomitant]
  3. PRILOSEC [Concomitant]
  4. GLUCOPHAGE [Concomitant]
  5. CYMBALTA [Suspect]
     Dosage: 30 MG, UNK
     Route: 048
     Dates: start: 20070101, end: 20070301

REACTIONS (2)
  - AKATHISIA [None]
  - EXTRAPYRAMIDAL DISORDER [None]
